FAERS Safety Report 7806309 (Version 3)
Quarter: 2013Q4

REPORT INFORMATION
  Report Type: Spontaneous
  Country: IR (occurrence: IR)
  Receive Date: 20110209
  Receipt Date: 20131004
  Transmission Date: 20140711
  Serious: Yes (Other)
  Sender: FDA-Public Use
  Company Number: IR-JNJFOC-20110200659

PATIENT
  Age: 40 Year
  Sex: Female

DRUGS (1)
  1. TOPIRAMATE [Suspect]
     Indication: MIGRAINE
     Route: 065

REACTIONS (6)
  - Hypopyon [Unknown]
  - Choroidal effusion [Unknown]
  - Myopia [Unknown]
  - Uveitis [Recovered/Resolved]
  - Angle closure glaucoma [Unknown]
  - Iris adhesions [Unknown]
